FAERS Safety Report 25236412 (Version 1)
Quarter: 2025Q2

REPORT INFORMATION
  Report Type: Spontaneous
  Country: RO (occurrence: RO)
  Receive Date: 20250424
  Receipt Date: 20250424
  Transmission Date: 20250717
  Serious: Yes (Death, Other)
  Sender: NOVARTIS
  Company Number: RO-002147023-NVSC2025RO041970

PATIENT

DRUGS (5)
  1. KYMRIAH [Suspect]
     Active Substance: TISAGENLECLEUCEL
     Indication: Diffuse large B-cell lymphoma refractory
     Route: 042
  2. MINE [Concomitant]
     Indication: Chemotherapy
     Route: 065
  3. FLUDARABINE [Concomitant]
     Active Substance: FLUDARABINE PHOSPHATE
     Indication: Lymphodepletion
     Route: 065
  4. CYCLOPHOSPHAMIDE [Concomitant]
     Active Substance: CYCLOPHOSPHAMIDE
     Indication: Lymphodepletion
     Route: 065
  5. EPCORITAMAB [Concomitant]
     Active Substance: EPCORITAMAB
     Indication: Product used for unknown indication
     Route: 065

REACTIONS (3)
  - Diffuse large B-cell lymphoma refractory [Fatal]
  - Malignant neoplasm progression [Fatal]
  - Cytokine release syndrome [Unknown]
